FAERS Safety Report 4353351-3 (Version None)
Quarter: 2004Q2

REPORT INFORMATION
  Report Type: 
  Country: None (occurrence: None)
  Receive Date: 20040505
  Receipt Date: 20040430
  Transmission Date: 20050107
  Serious: Yes (Other)
  Sender: FDA-Public Use
  Company Number: US-BRISTOL-MYERS SQUIBB COMPANY-12576302

PATIENT
  Age: 37 Year
  Sex: Male
  Weight: 109 kg

DRUGS (2)
  1. ERBITUX [Suspect]
     Indication: COLON CANCER
     Route: 042
     Dates: start: 20040430, end: 20040430
  2. BENADRYL [Concomitant]
     Indication: PREMEDICATION
     Route: 042
     Dates: start: 20040430, end: 20040430

REACTIONS (3)
  - BRONCHOSPASM [None]
  - FLUSHING [None]
  - RASH ERYTHEMATOUS [None]
